FAERS Safety Report 24306838 (Version 2)
Quarter: 2024Q3

REPORT INFORMATION
  Report Type: Spontaneous
  Country: CN (occurrence: CN)
  Receive Date: 20240911
  Receipt Date: 20240912
  Transmission Date: 20241017
  Serious: Yes (Other)
  Sender: JOHNSON AND JOHNSON
  Company Number: CN-JNJFOC-20240920256

PATIENT
  Sex: Female
  Weight: 0.79 kg

DRUGS (1)
  1. CHILDRENS MOTRIN [Suspect]
     Active Substance: IBUPROFEN
     Indication: Neonatal respiratory distress syndrome
     Route: 048
     Dates: start: 20240830, end: 20240901

REACTIONS (2)
  - Off label use [Unknown]
  - Oliguria [Recovered/Resolved]

NARRATIVE: CASE EVENT DATE: 20240830
